FAERS Safety Report 9824499 (Version 2)
Quarter: 2014Q1

REPORT INFORMATION
  Report Type: Spontaneous
  Country: DE (occurrence: DE)
  Receive Date: 20140116
  Receipt Date: 20140129
  Transmission Date: 20141002
  Serious: Yes (Hospitalization)
  Sender: FDA-Public Use
  Company Number: DE-ROCHE-1334100

PATIENT
  Age: 47 Year
  Sex: Female
  Weight: 85 kg

DRUGS (1)
  1. HERCEPTIN [Suspect]
     Indication: BREAST CANCER METASTATIC
     Route: 065

REACTIONS (3)
  - Cerebrovascular accident [Unknown]
  - Speech disorder [Recovering/Resolving]
  - Metastases to central nervous system [Unknown]
